FAERS Safety Report 13858282 (Version 1)
Quarter: 2017Q3

REPORT INFORMATION
  Report Type: Spontaneous
  Country: US (occurrence: US)
  Receive Date: 20170810
  Receipt Date: 20170810
  Transmission Date: 20171127
  Serious: Yes (Other)
  Sender: FDA-Public Use
  Company Number: None

PATIENT
  Age: 42 Year
  Sex: Female
  Weight: 63 kg

DRUGS (6)
  1. ADVIL [Concomitant]
     Active Substance: IBUPROFEN
  2. CLARITIN [Concomitant]
     Active Substance: LORATADINE
  3. CLARITIN [Concomitant]
     Active Substance: LORATADINE
  4. VIORELE [Suspect]
     Active Substance: DESOGESTREL\ETHINYL ESTRADIOL
     Indication: MIGRAINE
     Dosage: ?          QUANTITY:28 TABLET(S);?
     Route: 048
     Dates: start: 20170715
  5. TYLENOL [Concomitant]
     Active Substance: ACETAMINOPHEN
  6. FLONASE [Concomitant]
     Active Substance: FLUTICASONE PROPIONATE

REACTIONS (5)
  - Migraine [None]
  - Product substitution issue [None]
  - Drug effect decreased [None]
  - Disease recurrence [None]
  - Impaired work ability [None]

NARRATIVE: CASE EVENT DATE: 20170801
